FAERS Safety Report 19904080 (Version 2)
Quarter: 2021Q4

REPORT INFORMATION
  Report Type: Report from Study
  Country: US (occurrence: US)
  Receive Date: 20210930
  Receipt Date: 20211013
  Transmission Date: 20220303
  Serious: Yes (Other)
  Sender: FDA-Public Use
  Company Number: US-EXELIXIS-CABO-21043918

PATIENT
  Sex: Male

DRUGS (1)
  1. CABOMETYX [Suspect]
     Active Substance: CABOZANTINIB S-MALATE
     Indication: Thyroid cancer
     Dosage: 60 MG, QD
     Dates: start: 20210816

REACTIONS (13)
  - Spinal fracture [Unknown]
  - Abdominal discomfort [Not Recovered/Not Resolved]
  - Genital rash [Recovered/Resolved]
  - Chondropathy [Unknown]
  - Oral discomfort [Unknown]
  - Glossodynia [Unknown]
  - Oral pain [Unknown]
  - Fatigue [Unknown]
  - Nausea [Recovered/Resolved]
  - Blood pressure increased [Recovered/Resolved]
  - Weight decreased [Recovering/Resolving]
  - Headache [Unknown]
  - Off label use [Unknown]
